FAERS Safety Report 9846950 (Version 1)
Quarter: 2014Q1

REPORT INFORMATION
  Report Type: Spontaneous
  Country: US (occurrence: US)
  Receive Date: 20140127
  Receipt Date: 20140127
  Transmission Date: 20141002
  Serious: Yes (Hospitalization, Other)
  Sender: FDA-Public Use
  Company Number: US-TEVA-457897USA

PATIENT
  Age: 23 Year
  Sex: Male

DRUGS (3)
  1. NALTREXONE HYDROCHLORIDE TABLET 50MG [Suspect]
     Indication: REHABILITATION THERAPY
     Dosage: 50MG/DAY
     Route: 065
  2. METHADONE [Suspect]
     Indication: OVERDOSE
     Dosage: 30MG/DAY FOR 5 DAYS, THEN 90MG ON DAY 6
     Route: 048
  3. METHADONE [Suspect]
     Indication: OVERDOSE
     Dosage: 90MG ON DAY 6
     Route: 048

REACTIONS (3)
  - Deafness neurosensory [Not Recovered/Not Resolved]
  - Overdose [Recovering/Resolving]
  - Respiratory arrest [Recovered/Resolved]
